FAERS Safety Report 16246113 (Version 1)
Quarter: 2019Q2

REPORT INFORMATION
  Report Type: Spontaneous
  Country: JP (occurrence: JP)
  Receive Date: 20190426
  Receipt Date: 20190426
  Transmission Date: 20190711
  Serious: Yes (Other)
  Sender: FDA-Public Use
  Company Number: JP-SA-2019SA115024

PATIENT
  Age: 67 Year
  Sex: Male

DRUGS (3)
  1. OXALIPLATIN. [Suspect]
     Active Substance: OXALIPLATIN
  2. 5-FLUOROURACIL [FLUOROURACIL] [Suspect]
     Active Substance: FLUOROURACIL
  3. LEUCOVORIN CALCIUM. [Suspect]
     Active Substance: LEUCOVORIN CALCIUM

REACTIONS (9)
  - Metastases to lymph nodes [Unknown]
  - Thrombocytopenia [Unknown]
  - Treatment failure [Unknown]
  - Neutropenia [Unknown]
  - Disease progression [Unknown]
  - Metastases to lung [Unknown]
  - Nausea [Unknown]
  - Metastases to liver [Unknown]
  - Neuropathy peripheral [Unknown]
